FAERS Safety Report 8989057 (Version 1)
Quarter: 2012Q4

REPORT INFORMATION
  Report Type: Spontaneous
  Country: FR (occurrence: None)
  Receive Date: 20121218
  Receipt Date: 20121218
  Transmission Date: 20130627
  Serious: Yes (Hospitalization)
  Sender: FDA-Public Use
  Company Number: DSA_61409_2012

PATIENT
  Age: 58 Year
  Sex: Female

DRUGS (13)
  1. FLAGYL [Suspect]
     Dosage: (1 dosage form; 3 times a day Intravenous (not otherwise specified))
     Route: 042
     Dates: start: 20120620, end: 20120629
  2. CALCIPARIN [Suspect]
     Dosage: (1 dosage form; twice a day)
     Route: 058
  3. ACUPAN [Suspect]
     Dosage: (DF)
     Dates: start: 20120608, end: 20120705
  4. FUROSEMIDE (FUROSEMIDE) [Suspect]
     Dosage: (DF)
     Dates: start: 20120609, end: 20120630
  5. FUROSEMIDE (FUROSEMIDE) [Suspect]
     Dosage: (DF)
     Dates: start: 20120718, end: 20120718
  6. ROCEPHIN [Suspect]
     Dosage: (not otherwise specified))
     Route: 042
     Dates: start: 20120614, end: 20120629
  7. ZOPHREN [Suspect]
     Dosage: 1 dosage as needed(not otherwise specified))
     Route: 042
     Dates: end: 20120629
  8. DEBRIDAT [Suspect]
     Dosage: 1 dosage (not otherwise specified))
     Route: 042
  9. PARACETAMOL [Suspect]
  10. ARANESP [Suspect]
     Dosage: (DF)
  11. LEVOTHYROXINE SODIUM [Concomitant]
  12. CARBOPLATIN [Concomitant]
  13. TAXOL [Concomitant]

REACTIONS (1)
  - Renal failure acute [None]
